FAERS Safety Report 6356591-7 (Version None)
Quarter: 2009Q3

REPORT INFORMATION
  Report Type: 
  Country: None (occurrence: None)
  Receive Date: 20090911
  Receipt Date: 20090911
  Transmission Date: 20100115
  Serious: Yes (Hospitalization)
  Sender: FDA-Public Use
  Company Number: None

PATIENT
  Age: 75 Year
  Sex: Female
  Weight: 70.2 kg

DRUGS (6)
  1. ABILIFY [Suspect]
     Indication: SCHIZOPHRENIA
     Dosage: 20MG PO QD
     Dates: start: 20070201
  2. ATENOLOL [Concomitant]
  3. PREVACID [Concomitant]
  4. WELCHOL [Concomitant]
  5. OXYCARBEMAZEPINE [Concomitant]
  6. NAPROXEN [Concomitant]

REACTIONS (1)
  - BREAST CANCER RECURRENT [None]
